FAERS Safety Report 26189217 (Version 1)
Quarter: 2025Q4

REPORT INFORMATION
  Report Type: Report from Study
  Country: PE (occurrence: PE)
  Receive Date: 20251223
  Receipt Date: 20251223
  Transmission Date: 20260117
  Serious: Yes (Other)
  Sender: ROCHE
  Company Number: PE-ROCHE-10000465454

PATIENT
  Age: 67 Year
  Sex: Male

DRUGS (2)
  1. ACTEMRA [Suspect]
     Active Substance: TOCILIZUMAB
     Indication: Rheumatoid arthritis
     Route: 058
  2. VITAMIN D3 [Concomitant]
     Active Substance: CHOLECALCIFEROL
     Dosage: VITAMIN D3 2000UI: 1 CAPSULE/DAY, AFTER MEAL FOR 4 MONTHS
     Route: 048

REACTIONS (2)
  - Osteoporosis [Unknown]
  - Pathological fracture [Unknown]
